FAERS Safety Report 13429119 (Version 1)
Quarter: 2017Q2

REPORT INFORMATION
  Report Type: Spontaneous
  Country: US (occurrence: US)
  Receive Date: 20170411
  Receipt Date: 20170411
  Transmission Date: 20170830
  Serious: Yes (Other)
  Sender: FDA-Public Use
  Company Number: US-INSYS THERAPEUTICS, INC-INS201703-000241

PATIENT
  Sex: Male

DRUGS (5)
  1. OXYCODONE [Concomitant]
     Active Substance: OXYCODONE
  2. FENTANYL TRANSDERMAL SYSTEM [Concomitant]
     Active Substance: FENTANYL
  3. BUTRANS [Concomitant]
     Active Substance: BUPRENORPHINE
  4. SUBSYS [Suspect]
     Active Substance: FENTANYL
     Indication: BACK PAIN
     Route: 060
     Dates: start: 20130702
  5. SUBSYS [Suspect]
     Active Substance: FENTANYL
     Indication: PAIN IN EXTREMITY
     Route: 060
     Dates: start: 20131002

REACTIONS (7)
  - Overdose [Unknown]
  - Drug use disorder [Unknown]
  - Loss of consciousness [Unknown]
  - Depression [Unknown]
  - Drug withdrawal syndrome [Unknown]
  - Injury [Not Recovered/Not Resolved]
  - Lethargy [Unknown]
